FAERS Safety Report 8297739-7 (Version None)
Quarter: 2012Q2

REPORT INFORMATION
  Report Type: 
  Country: None (occurrence: None)
  Receive Date: 20120419
  Receipt Date: 20120413
  Transmission Date: 20120825
  Serious: Yes (Other)
  Sender: FDA-Public Use
  Company Number: ZA-PFIZER INC-2012050840

PATIENT
  Age: 73 Year
  Sex: Male

DRUGS (1)
  1. SUTENT [Suspect]
     Indication: RENAL CELL CARCINOMA
     Dosage: UNK

REACTIONS (5)
  - HYPERTHYROIDISM [None]
  - RENAL CELL CARCINOMA [None]
  - NEUTROPENIA [None]
  - THYROIDITIS [None]
  - DISEASE PROGRESSION [None]
